FAERS Safety Report 18310383 (Version 1)
Quarter: 2020Q3

REPORT INFORMATION
  Report Type: Spontaneous
  Country: US (occurrence: US)
  Receive Date: 20200924
  Receipt Date: 20200924
  Transmission Date: 20201103
  Serious: Yes (Other)
  Sender: FDA-Public Use
  Company Number: US-BIOMARINAP-US-2020-132415

PATIENT

DRUGS (2)
  1. ALDURAZYME [Suspect]
     Active Substance: LARONIDASE
     Indication: MUCOPOLYSACCHARIDOSIS I
     Dosage: 5.8 MILLIGRAM, QW
     Route: 042
     Dates: start: 20190124, end: 20190927
  2. ALDURAZYME [Suspect]
     Active Substance: LARONIDASE
     Dosage: 5.8 MILLIGRAM, QW
     Route: 042
     Dates: start: 20200917

REACTIONS (1)
  - Complications of bone marrow transplant [Unknown]
